FAERS Safety Report 5279214-7 (Version None)
Quarter: 2007Q1

REPORT INFORMATION
  Report Type: 
  Country: None (occurrence: None)
  Receive Date: 20070328
  Receipt Date: 20070327
  Transmission Date: 20070707
  Serious: Yes (Hospitalization, Other)
  Sender: FDA-Public Use
  Company Number: DE-BRISTOL-MYERS SQUIBB COMPANY-13681259

PATIENT
  Age: 21 Year
  Sex: Female
  Weight: 60 kg

DRUGS (6)
  1. BESPAR [Suspect]
     Dosage: 50 MG TAKEN IN SECOND ATTEMPT; AMOUNT USED IN FIRST ATTEMPT NOT REPORTED
     Route: 048
  2. IBUPROFEN [Suspect]
     Route: 048
  3. METAMIZOLE [Suspect]
     Route: 048
  4. TRIMIPRAMINE MALEATE [Suspect]
     Route: 048
  5. ZOPICLON [Suspect]
     Route: 048
     Dates: start: 20070302
  6. ZYPREXA [Suspect]
     Dosage: 1 DOSAGE FORM = 30 TABLETS
     Route: 048
     Dates: start: 20070302

REACTIONS (9)
  - AGGRESSION [None]
  - COMA [None]
  - FATIGUE [None]
  - INTENTIONAL SELF-INJURY [None]
  - MIOSIS [None]
  - MULTIPLE DRUG OVERDOSE INTENTIONAL [None]
  - SEDATION [None]
  - SOMNOLENCE [None]
  - SUICIDAL IDEATION [None]
